FAERS Safety Report 7562888-5 (Version None)
Quarter: 2011Q2

REPORT INFORMATION
  Report Type: 
  Country: None (occurrence: None)
  Receive Date: 20110622
  Receipt Date: 20110610
  Transmission Date: 20111010
  Serious: Yes (Hospitalization)
  Sender: FDA-Public Use
  Company Number: US-ROCHE-779131

PATIENT
  Sex: Male
  Weight: 100.8 kg

DRUGS (25)
  1. BEVACIZUMAB [Suspect]
     Indication: OESOPHAGEAL CANCER METASTATIC
     Route: 065
     Dates: start: 20110517, end: 20110517
  2. CAPECITABINE [Suspect]
     Indication: OESOPHAGEAL CANCER METASTATIC
     Dosage: DOSE FREQUENCY:1 PER 2 WEEKS ON AND 1 OFF
     Route: 065
     Dates: start: 20110517, end: 20110523
  3. OXALIPLATIN [Suspect]
     Route: 065
     Dates: end: 20110607
  4. OXALIPLATIN [Suspect]
     Route: 065
     Dates: start: 20110607
  5. TRASTUZUMAB [Suspect]
     Route: 065
     Dates: end: 20110607
  6. TRASTUZUMAB [Suspect]
     Route: 065
     Dates: start: 20110607
  7. ACTOS [Concomitant]
  8. EMLA [Concomitant]
  9. LISINOPRIL [Concomitant]
  10. CAPECITABINE [Suspect]
     Dosage: FREQUENCY: 2 WEEKS ON ,1 OFF
     Route: 065
     Dates: end: 20110610
  11. COMPAZINE [Concomitant]
     Dosage: REPORTED AS COMPAZINO
  12. GLYBURIDE [Concomitant]
  13. LOMOTIL [Concomitant]
  14. ZOFRAN [Concomitant]
  15. CAPECITABINE [Suspect]
     Dosage: FREQUENCY: 2 WEEKS ON, 1 OFF
     Route: 065
     Dates: start: 20110607
  16. LANTUS [Concomitant]
     Dosage: REPORTED AS LANTUS SOLOSTAR PEN
  17. PERCOCET [Concomitant]
  18. OXALIPLATIN [Suspect]
     Indication: OESOPHAGEAL CANCER METASTATIC
     Route: 065
     Dates: start: 20110517, end: 20110517
  19. CRESTOR [Concomitant]
  20. XANAX [Concomitant]
  21. BEVACIZUMAB [Suspect]
     Route: 065
     Dates: end: 20110607
  22. DECADRON [Concomitant]
  23. TRASTUZUMAB [Suspect]
     Indication: OESOPHAGEAL CANCER METASTATIC
     Route: 065
     Dates: start: 20110510, end: 20110517
  24. BEVACIZUMAB [Suspect]
     Route: 065
     Dates: start: 20110607
  25. PRILOSEC [Concomitant]

REACTIONS (3)
  - CHEST PAIN [None]
  - PULMONARY EMBOLISM [None]
  - HYPERTENSION [None]
